FAERS Safety Report 6338991-4 (Version None)
Quarter: 2009Q3

REPORT INFORMATION
  Report Type: 
  Country: None (occurrence: None)
  Receive Date: 20090903
  Receipt Date: 20090728
  Transmission Date: 20100115
  Serious: Yes (Hospitalization)
  Sender: FDA-Public Use
  Company Number: PHHY2009US36007

PATIENT

DRUGS (1)
  1. IMATINIB MESYLATE [Suspect]
     Indication: DERMATOFIBROSARCOMA
     Dosage: 800 MG/DAY

REACTIONS (4)
  - CYTOREDUCTIVE SURGERY [None]
  - DRY SKIN [None]
  - FLANK PAIN [None]
  - MICROGRAPHIC SKIN SURGERY [None]
